FAERS Safety Report 5612464-6 (Version None)
Quarter: 2008Q1

REPORT INFORMATION
  Report Type: 
  Country: None (occurrence: None)
  Receive Date: 20080129
  Receipt Date: 20080123
  Transmission Date: 20080703
  Serious: Yes (Hospitalization)
  Sender: FDA-Public Use
  Company Number: 2008002181

PATIENT
  Age: 89 Year
  Sex: Female
  Weight: 68.9467 kg

DRUGS (1)
  1. LISTERINE WHITENING QUICK DISSOLVING STRIPS (NO ACTIVE INGREDIENT) [Suspect]
     Indication: DENTAL CARE
     Dosage: 1 TIME A DAY (1 IN 1 D), ORAL; 1 TIME A DAY (1 IN 1 D), ORAL TOPICAL
     Route: 048
     Dates: start: 20071107, end: 20071218

REACTIONS (3)
  - CONDITION AGGRAVATED [None]
  - MULTIPLE ALLERGIES [None]
  - WHEEZING [None]
